FAERS Safety Report 17582026 (Version 1)
Quarter: 2020Q1

REPORT INFORMATION
  Report Type: Spontaneous
  Country: JP (occurrence: JP)
  Receive Date: 20200325
  Receipt Date: 20200325
  Transmission Date: 20200409
  Serious: Yes (Other)
  Sender: FDA-Public Use
  Company Number: JP-BAUSCH-BL-2020-008006

PATIENT
  Age: 67 Year
  Sex: Male
  Weight: 58 kg

DRUGS (63)
  1. IRINOTECAN [Suspect]
     Active Substance: IRINOTECAN
     Route: 065
     Dates: start: 20180620, end: 20180704
  2. IRINOTECAN [Suspect]
     Active Substance: IRINOTECAN
     Dosage: 1X: ONE TIME
     Route: 065
     Dates: start: 20190320, end: 20190320
  3. IRINOTECAN [Suspect]
     Active Substance: IRINOTECAN
     Dosage: 1X: ONE TIME
     Route: 065
     Dates: start: 20190508, end: 20190508
  4. FLUOROURACIL. [Suspect]
     Active Substance: FLUOROURACIL
     Dosage: 1X: ONE TIME
     Route: 041
     Dates: start: 20190320, end: 20190320
  5. ZALTRAP [Suspect]
     Active Substance: ZIV-AFLIBERCEPT
     Dosage: 1X: ONE TIME
     Route: 041
     Dates: start: 20190619, end: 20190619
  6. IRINOTECAN [Suspect]
     Active Substance: IRINOTECAN
     Dosage: 1X: ONE TIME
     Route: 065
     Dates: start: 20181010, end: 20181010
  7. FLUOROURACIL. [Suspect]
     Active Substance: FLUOROURACIL
     Route: 040
     Dates: start: 20180620, end: 20180704
  8. FLUOROURACIL. [Suspect]
     Active Substance: FLUOROURACIL
     Dosage: 1X: ONE TIME
     Route: 040
     Dates: start: 20190508, end: 20190508
  9. FLUOROURACIL. [Suspect]
     Active Substance: FLUOROURACIL
     Dosage: 1X: ONE TIME
     Route: 040
     Dates: start: 20190619, end: 20190619
  10. ATROPINE SULFATE. [Suspect]
     Active Substance: ATROPINE SULFATE
     Indication: PRODUCT USED FOR UNKNOWN INDICATION
     Route: 065
  11. ZALTRAP [Suspect]
     Active Substance: ZIV-AFLIBERCEPT
     Dosage: 1X: ONE TIME
     Route: 041
     Dates: start: 20180905, end: 20180905
  12. ZALTRAP [Suspect]
     Active Substance: ZIV-AFLIBERCEPT
     Dosage: 1X: ONE TIME
     Route: 041
     Dates: start: 20181010, end: 20181010
  13. ZALTRAP [Suspect]
     Active Substance: ZIV-AFLIBERCEPT
     Dosage: 1X: ONE TIME
     Route: 041
     Dates: start: 20190320, end: 20190320
  14. ZALTRAP [Suspect]
     Active Substance: ZIV-AFLIBERCEPT
     Dosage: 1X: ONE TIME
     Route: 041
     Dates: start: 20190403, end: 20190403
  15. CALCIUM FOLINATE [Suspect]
     Active Substance: LEUCOVORIN CALCIUM
     Dosage: 1X: ONE TIME
     Route: 065
     Dates: start: 20190320, end: 20190320
  16. IRINOTECAN [Suspect]
     Active Substance: IRINOTECAN
     Dosage: 1X: ONE TIME
     Route: 065
     Dates: start: 20190213, end: 20190213
  17. IRINOTECAN [Suspect]
     Active Substance: IRINOTECAN
     Dosage: 1X: ONE TIME
     Route: 065
     Dates: start: 20190403, end: 20190403
  18. IRINOTECAN [Suspect]
     Active Substance: IRINOTECAN
     Dosage: 1X: ONE TIME
     Route: 065
     Dates: start: 20190619, end: 20190619
  19. FLUOROURACIL. [Suspect]
     Active Substance: FLUOROURACIL
     Route: 041
     Dates: start: 20180502, end: 20180523
  20. FLUOROURACIL. [Suspect]
     Active Substance: FLUOROURACIL
     Dosage: 1X: ONE TIME
     Route: 040
     Dates: start: 20190213, end: 20190213
  21. ZALTRAP [Suspect]
     Active Substance: ZIV-AFLIBERCEPT
     Dosage: 1X: ONE TIME
     Route: 041
     Dates: start: 20180523, end: 20180523
  22. ZALTRAP [Suspect]
     Active Substance: ZIV-AFLIBERCEPT
     Dosage: 1X: ONE TIME
     Route: 041
     Dates: start: 20190123, end: 20190123
  23. ZALTRAP [Suspect]
     Active Substance: ZIV-AFLIBERCEPT
     Dosage: 1X: ONE TIME
     Route: 041
     Dates: start: 20190213, end: 20190213
  24. CALCIUM FOLINATE [Suspect]
     Active Substance: LEUCOVORIN CALCIUM
     Dosage: 1X: ONE TIME
     Route: 065
     Dates: start: 20181010, end: 20181010
  25. CALCIUM FOLINATE [Suspect]
     Active Substance: LEUCOVORIN CALCIUM
     Dosage: 1X: ONE TIME
     Route: 065
     Dates: start: 20181212, end: 20181212
  26. CALCIUM FOLINATE [Suspect]
     Active Substance: LEUCOVORIN CALCIUM
     Dosage: 1X: ONE TIME
     Route: 065
     Dates: start: 20190619, end: 20190619
  27. IRINOTECAN [Suspect]
     Active Substance: IRINOTECAN
     Indication: RECTAL CANCER
     Route: 065
     Dates: start: 20180502, end: 20180523
  28. FLUOROURACIL. [Suspect]
     Active Substance: FLUOROURACIL
     Dosage: 1X: ONE TIME
     Route: 040
     Dates: start: 20190403, end: 20190403
  29. ZALTRAP [Suspect]
     Active Substance: ZIV-AFLIBERCEPT
     Indication: RECTAL CANCER
     Dosage: 1X: ONE TIME
     Route: 041
     Dates: start: 20180502, end: 20180502
  30. ZALTRAP [Suspect]
     Active Substance: ZIV-AFLIBERCEPT
     Dosage: 1X: ONE TIME
     Route: 041
     Dates: start: 20181107, end: 20181107
  31. CALCIUM FOLINATE [Suspect]
     Active Substance: LEUCOVORIN CALCIUM
     Dosage: 1X: ONE TIME
     Route: 065
     Dates: start: 20190403, end: 20190403
  32. CALCIUM FOLINATE [Suspect]
     Active Substance: LEUCOVORIN CALCIUM
     Dosage: 1X: ONE TIME
     Route: 065
     Dates: start: 20190508, end: 20190508
  33. FLUOROURACIL. [Suspect]
     Active Substance: FLUOROURACIL
     Indication: RECTAL CANCER
     Route: 040
     Dates: start: 20180502, end: 20180523
  34. FLUOROURACIL. [Suspect]
     Active Substance: FLUOROURACIL
     Dosage: 1X: ONE TIME
     Route: 041
     Dates: start: 20181117, end: 20181117
  35. FLUOROURACIL. [Suspect]
     Active Substance: FLUOROURACIL
     Dosage: 1X: ONE TIME
     Route: 041
     Dates: start: 20181212, end: 20181212
  36. FLUOROURACIL. [Suspect]
     Active Substance: FLUOROURACIL
     Dosage: 1X: ONE TIME
     Route: 040
     Dates: start: 20190123, end: 20190123
  37. FLUOROURACIL. [Suspect]
     Active Substance: FLUOROURACIL
     Dosage: 1X: ONE TIME
     Route: 040
     Dates: start: 20190320, end: 20190320
  38. ZALTRAP [Suspect]
     Active Substance: ZIV-AFLIBERCEPT
     Route: 041
     Dates: start: 20180620, end: 20180704
  39. CALCIUM FOLINATE [Suspect]
     Active Substance: LEUCOVORIN CALCIUM
     Route: 065
     Dates: start: 20180620, end: 20180704
  40. CALCIUM FOLINATE [Suspect]
     Active Substance: LEUCOVORIN CALCIUM
     Dosage: 1X: ONE TIME
     Route: 065
     Dates: start: 20181107, end: 20181107
  41. CALCIUM FOLINATE [Suspect]
     Active Substance: LEUCOVORIN CALCIUM
     Dosage: 1X: ONE TIME
     Route: 065
     Dates: start: 20190213, end: 20190213
  42. IRINOTECAN [Suspect]
     Active Substance: IRINOTECAN
     Dosage: 1X: ONE TIME
     Route: 065
     Dates: start: 20181107, end: 20181107
  43. IRINOTECAN [Suspect]
     Active Substance: IRINOTECAN
     Dosage: 1X: ONE TIME
     Route: 065
     Dates: start: 20191212, end: 20191212
  44. FLUOROURACIL. [Suspect]
     Active Substance: FLUOROURACIL
     Dosage: 1X: ONE TIME
     Route: 040
     Dates: start: 20181010, end: 20181010
  45. FLUOROURACIL. [Suspect]
     Active Substance: FLUOROURACIL
     Dosage: 1X: ONE TIME
     Route: 041
     Dates: start: 20190508, end: 20190508
  46. CALCIUM FOLINATE [Suspect]
     Active Substance: LEUCOVORIN CALCIUM
     Indication: RECTAL CANCER
     Route: 065
     Dates: start: 20180502, end: 20180523
  47. CALCIUM FOLINATE [Suspect]
     Active Substance: LEUCOVORIN CALCIUM
     Dosage: 1X: ONE TIME
     Route: 065
     Dates: start: 20180905, end: 20180905
  48. CALCIUM FOLINATE [Suspect]
     Active Substance: LEUCOVORIN CALCIUM
     Dosage: 1X: ONE TIME
     Route: 065
     Dates: start: 20190123, end: 20190123
  49. IRINOTECAN [Suspect]
     Active Substance: IRINOTECAN
     Dosage: 1X: ONE TIME
     Route: 065
     Dates: start: 20190123, end: 20190123
  50. FLUOROURACIL. [Suspect]
     Active Substance: FLUOROURACIL
     Dosage: 1X: ONE TIME
     Route: 040
     Dates: start: 20180905, end: 20180905
  51. FLUOROURACIL. [Suspect]
     Active Substance: FLUOROURACIL
     Dosage: 1X: ONE TIME
     Route: 041
     Dates: start: 20180905, end: 20180905
  52. FLUOROURACIL. [Suspect]
     Active Substance: FLUOROURACIL
     Dosage: 1X: ONE TIME
     Route: 041
     Dates: start: 20190123, end: 20190123
  53. FLUOROURACIL. [Suspect]
     Active Substance: FLUOROURACIL
     Dosage: 1X: ONE TIME
     Route: 041
     Dates: start: 20190213, end: 20190213
  54. ZALTRAP [Suspect]
     Active Substance: ZIV-AFLIBERCEPT
     Dosage: 1X: ONE TIME
     Route: 041
     Dates: start: 20190508, end: 20190508
  55. IRINOTECAN [Suspect]
     Active Substance: IRINOTECAN
     Dosage: 1X: ONE TIME
     Route: 065
     Dates: start: 20180905, end: 20180905
  56. FLUOROURACIL. [Suspect]
     Active Substance: FLUOROURACIL
     Route: 041
     Dates: start: 20180620, end: 20180704
  57. FLUOROURACIL. [Suspect]
     Active Substance: FLUOROURACIL
     Dosage: 1X: ONE TIME
     Route: 041
     Dates: start: 20181010, end: 20181010
  58. FLUOROURACIL. [Suspect]
     Active Substance: FLUOROURACIL
     Dosage: 1X: ONE TIME
     Route: 040
     Dates: start: 20181117, end: 20181117
  59. FLUOROURACIL. [Suspect]
     Active Substance: FLUOROURACIL
     Dosage: 1X: ONE TIME
     Route: 040
     Dates: start: 20181212, end: 20181212
  60. FLUOROURACIL. [Suspect]
     Active Substance: FLUOROURACIL
     Dosage: 1X: ONE TIME
     Route: 041
     Dates: start: 20190403, end: 20190403
  61. FLUOROURACIL. [Suspect]
     Active Substance: FLUOROURACIL
     Dosage: 1X: ONE TIME
     Route: 041
     Dates: start: 20190619, end: 20190619
  62. LOPEMIN [Concomitant]
     Indication: DIARRHOEA
     Dates: start: 20180523, end: 20180615
  63. ENTOMIN [Concomitant]
     Indication: HICCUPS
     Dates: start: 20180523, end: 20180530

REACTIONS (2)
  - Neutrophil count decreased [Recovered/Resolved]
  - Urinary retention [Recovered/Resolved]

NARRATIVE: CASE EVENT DATE: 20180605
